FAERS Safety Report 7878512-8 (Version None)
Quarter: 2011Q4

REPORT INFORMATION
  Report Type: 
  Country: None (occurrence: None)
  Receive Date: 20111101
  Receipt Date: 20111025
  Transmission Date: 20120403
  Serious: Yes (Other)
  Sender: FDA-Public Use
  Company Number: US-MYLANLABS-2011S1017210

PATIENT
  Age: 46 Year
  Sex: Male
  Weight: 86.18 kg

DRUGS (5)
  1. CLOZAPINE [Suspect]
     Indication: SCHIZOPHRENIA
     Route: 048
     Dates: end: 20110801
  2. CLOZAPINE [Suspect]
     Route: 048
     Dates: start: 20110801
  3. SELZENTRY [Concomitant]
  4. SEROQUEL [Concomitant]
  5. TRAZODONE HYDROCHLORIDE [Concomitant]

REACTIONS (2)
  - SYMPTOM MASKED [None]
  - GRANULOCYTOPENIA [None]
